FAERS Safety Report 8162101-4 (Version None)
Quarter: 2012Q1

REPORT INFORMATION
  Report Type: 
  Country: None (occurrence: None)
  Receive Date: 20120103
  Receipt Date: 20110927
  Transmission Date: 20120608
  Serious: No
  Sender: FDA-Public Use
  Company Number: AE-2011-001884

PATIENT
  Age: 50 Year
  Sex: Female
  Weight: 64.4108 kg

DRUGS (4)
  1. CLONAZEPAM [Concomitant]
  2. COPEGUS [Concomitant]
  3. PEGASYS [Concomitant]
  4. INCIVEK [Suspect]
     Dosage: 93.75 MG (750 MG, 1 IN 8 D)
     Dates: start: 20110820

REACTIONS (1)
  - INAPPROPRIATE SCHEDULE OF DRUG ADMINISTRATION [None]
